FAERS Safety Report 6402732-2 (Version None)
Quarter: 2009Q4

REPORT INFORMATION
  Report Type: 
  Country: None (occurrence: None)
  Receive Date: 20091013
  Receipt Date: 20091005
  Transmission Date: 20100525
  Serious: Yes (Death)
  Sender: FDA-Public Use
  Company Number: 2009US003675

PATIENT
  Sex: Female
  Weight: 0.3629 kg

DRUGS (2)
  1. PROGRAF [Suspect]
     Indication: DRUG EXPOSURE DURING PREGNANCY
     Dosage: 6 MG, BID, ORAL
     Route: 048
  2. PREDNISONE TAB [Concomitant]

REACTIONS (3)
  - DEATH NEONATAL [None]
  - MATERNAL DRUGS AFFECTING FOETUS [None]
  - RESUSCITATION [None]
